FAERS Safety Report 16766201 (Version 2)
Quarter: 2019Q3

REPORT INFORMATION
  Report Type: Spontaneous
  Country: CA (occurrence: CA)
  Receive Date: 20190903
  Receipt Date: 20190930
  Transmission Date: 20191005
  Serious: Yes (Other)
  Sender: FDA-Public Use
  Company Number: CA-PFIZER INC-2019352710

PATIENT
  Age: 62 Year
  Sex: Female

DRUGS (4)
  1. METHOTREXATE SODIUM. [Suspect]
     Active Substance: METHOTREXATE SODIUM
     Dosage: 25 MG, UNK
     Route: 048
     Dates: start: 2017, end: 201906
  2. METHOTREXATE SODIUM. [Suspect]
     Active Substance: METHOTREXATE SODIUM
     Dosage: 20 UNK, WEEKLY
     Route: 058
     Dates: start: 2017, end: 201906
  3. PLAQUENIL [Concomitant]
     Active Substance: HYDROXYCHLOROQUINE SULFATE
     Dosage: 400 UNK, UNK
     Dates: start: 2017
  4. CELEBREX [Concomitant]
     Active Substance: CELECOXIB
     Dosage: 100 MG, 1X/DAY
     Route: 048
     Dates: start: 2016

REACTIONS (4)
  - Dysgeusia [Recovered/Resolved]
  - Ankle fracture [Unknown]
  - Headache [Recovered/Resolved]
  - Arthritis [Unknown]

NARRATIVE: CASE EVENT DATE: 20190529
